FAERS Safety Report 25860355 (Version 2)
Quarter: 2025Q4

REPORT INFORMATION
  Report Type: Spontaneous
  Country: RU (occurrence: RU)
  Receive Date: 20250929
  Receipt Date: 20251013
  Transmission Date: 20260118
  Serious: Yes (Other)
  Sender: NOVARTIS
  Company Number: RU-002147023-NVSC2025RU144968

PATIENT
  Age: 67 Year
  Sex: Female

DRUGS (6)
  1. TRAMETINIB [Suspect]
     Active Substance: TRAMETINIB
     Indication: Malignant melanoma
     Dosage: 150 MG, BID (TABLET)
     Route: 048
     Dates: start: 20250116
  2. TRAMETINIB [Suspect]
     Active Substance: TRAMETINIB
     Dosage: 2 MG, QD
     Route: 048
     Dates: start: 20250116
  3. TRAMETINIB [Suspect]
     Active Substance: TRAMETINIB
     Dosage: UNK (6 TO 7 COURSES)
     Route: 065
     Dates: start: 20250319
  4. TAFINLAR [Suspect]
     Active Substance: DABRAFENIB MESYLATE
     Indication: Malignant melanoma
     Dosage: 2 MG, QD
     Route: 048
     Dates: start: 20250116
  5. TAFINLAR [Suspect]
     Active Substance: DABRAFENIB MESYLATE
     Dosage: 150 MG, BID (150 MG 2 TIMES A DAY AT THE SAME TIME WITH AN INTERVAL OF 12 HOURS, 1 HOUR BEFORE MEALS
     Route: 048
     Dates: start: 20250116
  6. TAFINLAR [Suspect]
     Active Substance: DABRAFENIB MESYLATE
     Dosage: UNK (6 TO 7 COURSES)
     Route: 065
     Dates: start: 20250319

REACTIONS (3)
  - Skin toxicity [Recovered/Resolved]
  - Pruritus [Recovered/Resolved]
  - Rash erythematous [Recovered/Resolved]

NARRATIVE: CASE EVENT DATE: 20250101
